FAERS Safety Report 14940898 (Version 3)
Quarter: 2018Q3

REPORT INFORMATION
  Report Type: Spontaneous
  Country: JP (occurrence: JP)
  Receive Date: 20180525
  Receipt Date: 20180917
  Transmission Date: 20181010
  Serious: Yes (Life-Threatening, Hospitalization, Other)
  Sender: FDA-Public Use
  Company Number: JP-ELI_LILLY_AND_COMPANY-JP201805011986

PATIENT
  Age: 65 Year
  Sex: Male
  Weight: 50 kg

DRUGS (3)
  1. ERBITUX [Suspect]
     Active Substance: CETUXIMAB
     Indication: OROPHARYNGEAL CANCER RECURRENT
     Dosage: UNK UNK, UNKNOWN
     Route: 041
     Dates: start: 20160128, end: 20170913
  2. 5?FU                               /00098801/ [Concomitant]
     Active Substance: FLUOROURACIL
     Indication: OROPHARYNGEAL CANCER RECURRENT
     Dosage: UNK, UNKNOWN
     Route: 065
  3. CDDP [Concomitant]
     Active Substance: CISPLATIN
     Indication: OROPHARYNGEAL CANCER RECURRENT
     Dosage: UNK UNK, UNKNOWN
     Route: 065

REACTIONS (2)
  - Bronchopulmonary aspergillosis [Not Recovered/Not Resolved]
  - Immunodeficiency [Unknown]

NARRATIVE: CASE EVENT DATE: 2017
